FAERS Safety Report 8041178-0 (Version None)
Quarter: 2012Q1

REPORT INFORMATION
  Report Type: 
  Country: None (occurrence: None)
  Receive Date: 20120112
  Receipt Date: 20120105
  Transmission Date: 20120608
  Serious: Yes (Other)
  Sender: FDA-Public Use
  Company Number: US-BRISTOL-MYERS SQUIBB COMPANY-16330714

PATIENT
  Age: 74 Year
  Sex: Male

DRUGS (1)
  1. AVAPRO-HCT TABS 300 MG/25 MG [Suspect]

REACTIONS (1)
  - DEAFNESS [None]
